FAERS Safety Report 12223658 (Version 1)
Quarter: 2016Q1

REPORT INFORMATION
  Report Type: Spontaneous
  Country: None (occurrence: SZ)
  Receive Date: 20160330
  Receipt Date: 20160330
  Transmission Date: 20160526
  Serious: Yes (Hospitalization)
  Sender: FDA-Public Use
  Company Number: SZ-POPULATION COUNCIL, INC.-1049977

PATIENT
  Age: 32 Year
  Sex: Female

DRUGS (1)
  1. JADELLE [Suspect]
     Active Substance: LEVONORGESTREL
     Indication: CONTRACEPTION
     Route: 059
     Dates: start: 20110714

REACTIONS (1)
  - Ectopic pregnancy under hormonal contraception [None]

NARRATIVE: CASE EVENT DATE: 20130128
